FAERS Safety Report 8530743 (Version 3)
Quarter: 2013Q1

REPORT INFORMATION
  Report Type: Report from Study
  Country: US (occurrence: US)
  Receive Date: 20120425
  Receipt Date: 20130130
  Transmission Date: 20140127
  Serious: Yes (Hospitalization, Other)
  Sender: FDA-Public Use
  Company Number: US-ACTELION-A-US2012-64293

PATIENT
  Age: 54 Year
  Sex: Male

DRUGS (5)
  1. TRACLEER [Suspect]
     Indication: PULMONARY ARTERIAL HYPERTENSION
     Dosage: 135 MG, UNK
     Route: 048
     Dates: start: 200711
  2. COUMADIN [Concomitant]
  3. FUROSEMIDE [Concomitant]
     Dosage: 120 MG, DAILY
  4. ALLOPURINOL [Concomitant]
     Dosage: 100 MG, OD
  5. PHENOBARBITAL [Concomitant]

REACTIONS (16)
  - Parathyroid tumour benign [Recovered/Resolved]
  - Blood calcium abnormal [Recovered/Resolved]
  - Blood calcium decreased [Recovered/Resolved]
  - Atrial fibrillation [Recovered/Resolved]
  - Atrial flutter [Recovered/Resolved]
  - Renal failure chronic [Not Recovered/Not Resolved]
  - Sleep disorder [Unknown]
  - Renal impairment [Not Recovered/Not Resolved]
  - Constipation [Unknown]
  - Blood magnesium decreased [Unknown]
  - Blood calcium increased [Recovered/Resolved]
  - Blood creatinine increased [Not Recovered/Not Resolved]
  - Blood potassium increased [Recovered/Resolved]
  - Blood thyroid stimulating hormone increased [Unknown]
  - Heart rate irregular [Recovered/Resolved]
  - Heart rate increased [Recovered/Resolved]
